FAERS Safety Report 6144318-3 (Version None)
Quarter: 2009Q2

REPORT INFORMATION
  Report Type: 
  Country: None (occurrence: None)
  Receive Date: 20090406
  Receipt Date: 20090330
  Transmission Date: 20091009
  Serious: Yes (Other)
  Sender: FDA-Public Use
  Company Number: FR-ASTRAZENECA-2009CG00529

PATIENT
  Age: 30103 Day
  Sex: Female

DRUGS (4)
  1. PULMICORT-100 [Suspect]
     Indication: BRONCHITIS
     Route: 055
     Dates: start: 20090304, end: 20090311
  2. SERUM PHYSIOLOGICAL [Concomitant]
     Route: 055
     Dates: start: 20090304, end: 20090311
  3. ROCEPHIN [Concomitant]
     Route: 030
     Dates: start: 20090304, end: 20090314
  4. SOLU-MEDROL [Concomitant]
     Route: 030
     Dates: start: 20090304, end: 20090314

REACTIONS (1)
  - ANOSMIA [None]
